FAERS Safety Report 10199274 (Version 1)
Quarter: 2014Q2

REPORT INFORMATION
  Report Type: Spontaneous
  Country: US (occurrence: US)
  Receive Date: 20140527
  Receipt Date: 20140527
  Transmission Date: 20141212
  Serious: No
  Sender: FDA-Public Use
  Company Number: US-NOVEN-13US008466

PATIENT
  Age: 9 Year
  Sex: Male

DRUGS (3)
  1. DAYTRANA [Suspect]
     Indication: ATTENTION DEFICIT/HYPERACTIVITY DISORDER
     Dosage: 10 MG, UNK
     Route: 062
     Dates: start: 201212
  2. SINGULAIR [Concomitant]
     Indication: SEASONAL ALLERGY
     Dosage: 5 MG, UNK
     Route: 048
  3. MELATONIN [Concomitant]
     Indication: SLEEP DISORDER
     Dosage: 4 MG, UNK
     Route: 048

REACTIONS (3)
  - Drug dose omission [Recovered/Resolved]
  - Product quality issue [Not Recovered/Not Resolved]
  - No adverse event [None]
